FAERS Safety Report 22643517 (Version 1)
Quarter: 2023Q2

REPORT INFORMATION
  Report Type: Spontaneous
  Country: US (occurrence: US)
  Receive Date: 20230627
  Receipt Date: 20230627
  Transmission Date: 20230722
  Serious: Yes (Hospitalization)
  Sender: FDA-Public Use
  Company Number: US-JNJFOC-20230648572

PATIENT
  Age: 57 Year
  Sex: Male

DRUGS (1)
  1. ACETAMINOPHEN [Suspect]
     Active Substance: ACETAMINOPHEN
     Indication: Product used for unknown indication
     Dosage: AVERAGE DAILY DOSE OF 1.3 GRAMS FOUR WEEKS
     Route: 048

REACTIONS (3)
  - Metabolic acidosis [Recovering/Resolving]
  - Sepsis [Recovering/Resolving]
  - Hypophagia [Recovering/Resolving]
